FAERS Safety Report 9011692 (Version 2)
Quarter: 2013Q1

REPORT INFORMATION
  Report Type: Spontaneous
  Country: US (occurrence: US)
  Receive Date: 20130111
  Receipt Date: 20130130
  Transmission Date: 20140127
  Serious: Yes (Death)
  Sender: FDA-Public Use
  Company Number: US-FRI-1000041456

PATIENT
  Age: 58 Year
  Sex: Male
  Weight: 87 kg

DRUGS (8)
  1. CITALOPRAM [Suspect]
  2. METAXALONE [Suspect]
  3. ZOLPIDEM [Suspect]
  4. CARISOPRODOL [Suspect]
  5. TEMAZEPAM [Suspect]
  6. HYDROCODONE [Suspect]
  7. PROMETHAZINE [Suspect]
  8. DIPHENHYDRAMINE [Suspect]

REACTIONS (2)
  - Toxicity to various agents [Fatal]
  - Completed suicide [Fatal]
